FAERS Safety Report 12382761 (Version 1)
Quarter: 2016Q2

REPORT INFORMATION
  Report Type: Spontaneous
  Country: LT (occurrence: LT)
  Receive Date: 20160518
  Receipt Date: 20160518
  Transmission Date: 20160815
  Serious: Yes (Hospitalization)
  Sender: FDA-Public Use
  Company Number: LT-TEVA-657636ISR

PATIENT
  Age: 17 Year
  Sex: Male
  Weight: 61 kg

DRUGS (3)
  1. OSPAMOX [Concomitant]
     Active Substance: AMOXICILLIN
     Indication: PYREXIA
     Dosage: 4000 MILLIGRAM DAILY;
     Route: 048
     Dates: start: 20160406, end: 20160409
  2. FINLEPSIN [Suspect]
     Active Substance: CARBAMAZEPINE
     Indication: PARTIAL SEIZURES
     Dosage: 400 MILLIGRAM DAILY;
     Route: 048
     Dates: start: 20160323, end: 20160427
  3. OSPAMOX [Concomitant]
     Active Substance: AMOXICILLIN
     Dosage: 4000 MILLIGRAM DAILY;
     Route: 048
     Dates: start: 20160414, end: 20160420

REACTIONS (5)
  - Swelling face [Recovering/Resolving]
  - Lymphadenopathy [Recovering/Resolving]
  - Rash maculo-papular [Recovering/Resolving]
  - Erythema [Recovering/Resolving]
  - Eosinophilia [Recovering/Resolving]

NARRATIVE: CASE EVENT DATE: 20160406
